FAERS Safety Report 17890156 (Version 1)
Quarter: 2020Q2

REPORT INFORMATION
  Report Type: Spontaneous
  Country: US (occurrence: US)
  Receive Date: 20200612
  Receipt Date: 20200612
  Transmission Date: 20200714
  Serious: Yes (Other)
  Sender: FDA-Public Use
  Company Number: US-BAYER-2020-114907

PATIENT
  Age: 82 Year
  Sex: Male

DRUGS (1)
  1. ASPIRIN (CARDIO) [Suspect]
     Active Substance: ASPIRIN
     Indication: ANTIPLATELET THERAPY
     Dosage: UNK

REACTIONS (3)
  - Labelled drug-drug interaction medication error [None]
  - Gastrointestinal haemorrhage [None]
  - Duodenal ulcer [None]
